FAERS Safety Report 6563628-9 (Version None)
Quarter: 2010Q1

REPORT INFORMATION
  Report Type: 
  Country: None (occurrence: None)
  Receive Date: 20100130
  Receipt Date: 20091217
  Transmission Date: 20100710
  Serious: No
  Sender: FDA-Public Use
  Company Number: US-ABBOTT-09P-163-0615982-00

PATIENT
  Sex: Male
  Weight: 104.42 kg

DRUGS (1)
  1. HUMIRA [Suspect]
     Indication: PSORIASIS
     Route: 058
     Dates: start: 20080512, end: 20090301

REACTIONS (5)
  - CONTUSION [None]
  - LETHARGY [None]
  - PLATELET COUNT DECREASED [None]
  - PSORIASIS [None]
  - WHITE BLOOD CELL COUNT DECREASED [None]
